FAERS Safety Report 5781219-4 (Version None)
Quarter: 2008Q2

REPORT INFORMATION
  Report Type: 
  Country: None (occurrence: None)
  Receive Date: 20080612
  Receipt Date: 20080601
  Transmission Date: 20081010
  Serious: Yes (Hospitalization)
  Sender: FDA-Public Use
  Company Number: 200610368BBE

PATIENT
  Age: 50 Year
  Sex: Female
  Weight: 90.9008 kg

DRUGS (11)
  1. GAMUNEX [Suspect]
     Indication: RELAPSING-REMITTING MULTIPLE SCLEROSIS
     Dosage: Q 4 MONTHS;
     Dates: start: 20051208
  2. GAMUNEX [Suspect]
  3. AMINOPYRIDINE [Concomitant]
  4. NALTREXONE HYDROCHLORIDE [Concomitant]
  5. LOMOTIL /00034001/ [Concomitant]
  6. TEMAZEPAM [Concomitant]
  7. LOPERAMIDE HCL [Concomitant]
  8. PREDNISONE [Concomitant]
  9. DOCUSATE [Concomitant]
  10. EPINEPHRINE [Concomitant]
  11. GABAPENTIN [Concomitant]

REACTIONS (10)
  - ASPARTATE AMINOTRANSFERASE INCREASED [None]
  - BLOOD BILIRUBIN INCREASED [None]
  - DIARRHOEA [None]
  - HAEMATURIA [None]
  - HAEMOLYSIS [None]
  - HAEMOLYTIC ANAEMIA [None]
  - HYPOKALAEMIA [None]
  - NITRITE URINE PRESENT [None]
  - VOMITING [None]
  - WHITE BLOOD CELLS URINE POSITIVE [None]
